FAERS Safety Report 13336638 (Version 1)
Quarter: 2017Q1

REPORT INFORMATION
  Report Type: Spontaneous
  Country: US (occurrence: US)
  Receive Date: 20170314
  Receipt Date: 20170314
  Transmission Date: 20170428
  Serious: Yes (Death)
  Sender: FDA-Public Use
  Company Number: None

PATIENT
  Age: 72 Year
  Sex: Male

DRUGS (1)
  1. POMALYST [Suspect]
     Active Substance: POMALIDOMIDE
     Indication: PLASMA CELL MYELOMA
     Dosage: 4MG QDAY X21 D/28D ORAL
     Route: 048
     Dates: start: 20130601, end: 20140730

REACTIONS (10)
  - Pneumonia [None]
  - General physical health deterioration [None]
  - Decreased appetite [None]
  - Asthenia [None]
  - Hallucination [None]
  - Mental status changes [None]
  - Fatigue [None]
  - Pain [None]
  - Diarrhoea [None]
  - Iatrogenic injury [None]

NARRATIVE: CASE EVENT DATE: 20140820
